FAERS Safety Report 5560040-6 (Version None)
Quarter: 2007Q4

REPORT INFORMATION
  Report Type: 
  Country: None (occurrence: None)
  Receive Date: 20071214
  Receipt Date: 20071029
  Transmission Date: 20080405
  Serious: No
  Sender: FDA-Public Use
  Company Number: US-ABBOTT-07P-163-0422761-00

PATIENT
  Sex: Female

DRUGS (6)
  1. HUMIRA [Suspect]
     Indication: RHEUMATOID ARTHRITIS
     Route: 058
     Dates: start: 20070801
  2. FLUXETINE [Concomitant]
     Indication: DEPRESSION
  3. RANITIDINE HCL [Concomitant]
     Indication: DRUG USE FOR UNKNOWN INDICATION
  4. PREDNISONE [Concomitant]
     Indication: PAIN
  5. PIROXICAM [Concomitant]
     Indication: PAIN
  6. ACETAMINOPHEN W/ CODEINE [Concomitant]
     Indication: PAIN

REACTIONS (5)
  - FEELING HOT [None]
  - PAIN [None]
  - RASH PAPULAR [None]
  - SKIN BURNING SENSATION [None]
  - SWELLING [None]
